FAERS Safety Report 8826258 (Version 8)
Quarter: 2013Q3

REPORT INFORMATION
  Report Type: Report from Study
  Country: US (occurrence: US)
  Receive Date: 20121005
  Receipt Date: 20130819
  Transmission Date: 20140515
  Serious: Yes (Other)
  Sender: FDA-Public Use
  Company Number: PHHY2011US21552

PATIENT
  Age: 70 Year
  Sex: Female

DRUGS (11)
  1. EXTAVIA [Suspect]
     Indication: MULTIPLE SCLEROSIS
     Dosage: 0.062 MG, QOD
     Route: 058
     Dates: start: 20110228
  2. EXTAVIA [Suspect]
     Dosage: 0.25 MG, QOD
     Route: 058
     Dates: start: 20110301
  3. EXTAVIA [Suspect]
     Dosage: 1 ML, QOD
     Route: 058
     Dates: start: 201202
  4. VICODIN [Concomitant]
     Indication: BACK PAIN
     Dosage: 750 MG, UPTO 2 DAILY
  5. ASPIRIN [Concomitant]
     Dosage: 81 MG, 2 TIMES DAILY
  6. ZANAFLEX [Concomitant]
     Indication: MUSCLE SPASMS
     Dosage: 2 MG, PRN
     Route: 048
  7. CALCIUM [Concomitant]
  8. MORPHINE [Concomitant]
     Dosage: UNK UKN, UNK
  9. SCALPICIN [Concomitant]
     Indication: PSORIASIS
  10. EFEXOR [Concomitant]
  11. EFEXOR [Concomitant]
     Dosage: DOSE INCREASED

REACTIONS (26)
  - Patella fracture [Not Recovered/Not Resolved]
  - Fall [Not Recovered/Not Resolved]
  - Lumbar radiculopathy [Unknown]
  - Thrombosis [Recovering/Resolving]
  - Osteoporosis [Not Recovered/Not Resolved]
  - Osteoarthritis [Not Recovered/Not Resolved]
  - Pain [Not Recovered/Not Resolved]
  - General physical condition abnormal [Not Recovered/Not Resolved]
  - Musculoskeletal pain [Not Recovered/Not Resolved]
  - Mobility decreased [Not Recovered/Not Resolved]
  - Arthropathy [Not Recovered/Not Resolved]
  - Haemorrhage [Unknown]
  - Pruritus [Not Recovered/Not Resolved]
  - Dry skin [Not Recovered/Not Resolved]
  - Back pain [Unknown]
  - Rash macular [Not Recovered/Not Resolved]
  - Spinal column stenosis [Not Recovered/Not Resolved]
  - Muscle spasms [Unknown]
  - Radiculopathy [Recovering/Resolving]
  - Hypoaesthesia [Not Recovered/Not Resolved]
  - Fibromyalgia [Not Recovered/Not Resolved]
  - Dysphonia [Not Recovered/Not Resolved]
  - Fatigue [Not Recovered/Not Resolved]
  - Depression [Unknown]
  - Injection site haemorrhage [Not Recovered/Not Resolved]
  - Anaemia [Recovering/Resolving]
